FAERS Safety Report 26064411 (Version 1)
Quarter: 2025Q4

REPORT INFORMATION
  Report Type: Spontaneous
  Country: US (occurrence: None)
  Receive Date: 20251118
  Receipt Date: 20251118
  Transmission Date: 20260118
  Serious: No
  Sender: FDA-CTU
  Company Number: None

PATIENT
  Age: 62 Year

DRUGS (9)
  1. EYLEA [Suspect]
     Active Substance: AFLIBERCEPT
  2. Lasix + potassium [Concomitant]
  3. XOPENEX [Concomitant]
     Active Substance: LEVALBUTEROL HYDROCHLORIDE
  4. VITAMIN D [Concomitant]
     Active Substance: VITAMIN D NOS
  5. JWH-018 [Concomitant]
     Active Substance: JWH-018
  6. ALA [Concomitant]
  7. COENZYME Q10 [Concomitant]
     Active Substance: DIETARY SUPPLEMENT\UBIDECARENONE
  8. MAGNESIUM [Concomitant]
     Active Substance: MAGNESIUM
  9. CALCIUM [Concomitant]
     Active Substance: CALCIUM

REACTIONS (3)
  - Headache [None]
  - Injection site pain [None]
  - Abnormal sensation in eye [None]

NARRATIVE: CASE EVENT DATE: 20251117
